FAERS Safety Report 7772893-1 (Version None)
Quarter: 2011Q3

REPORT INFORMATION
  Report Type: 
  Country: None (occurrence: None)
  Receive Date: 20110922
  Receipt Date: 20110913
  Transmission Date: 20111222
  Serious: Yes (Other)
  Sender: FDA-Public Use
  Company Number: US-ASTRAZENECA-2011SE55027

PATIENT
  Sex: Female

DRUGS (2)
  1. LIPITOR [Suspect]
  2. TOPROL-XL [Suspect]
     Route: 048

REACTIONS (6)
  - RASH [None]
  - HYPOACUSIS [None]
  - APHONIA [None]
  - MACULAR DEGENERATION [None]
  - EAR PAIN [None]
  - VISUAL ACUITY REDUCED [None]
